FAERS Safety Report 5819976-0 (Version None)
Quarter: 2008Q3

REPORT INFORMATION
  Report Type: 
  Country: None (occurrence: None)
  Receive Date: 20080721
  Receipt Date: 20080709
  Transmission Date: 20090109
  Serious: Yes (Hospitalization)
  Sender: FDA-Public Use
  Company Number: 2008AL008062

PATIENT
  Sex: Female

DRUGS (2)
  1. DIGOXIN [Suspect]
     Indication: CARDIAC DISORDER
     Dosage: 0.25 MG DAILY PO
     Route: 048
     Dates: start: 20080421
  2. ADVIL [Concomitant]

REACTIONS (2)
  - FEELING ABNORMAL [None]
  - THERAPEUTIC AGENT TOXICITY [None]
